FAERS Safety Report 23947102 (Version 2)
Quarter: 2024Q3

REPORT INFORMATION
  Report Type: Spontaneous
  Country: US (occurrence: US)
  Receive Date: 20240606
  Receipt Date: 20240726
  Transmission Date: 20241016
  Serious: Yes (Other)
  Sender: PFIZER
  Company Number: US-PFIZER INC-202300268288

PATIENT
  Age: 23 Year
  Sex: Male

DRUGS (1)
  1. BENEFIX [Suspect]
     Active Substance: COAGULATION FACTOR IX RECOMBINANT HUMAN\ISOPROPYL ALCOHOL
     Indication: Haemorrhage
     Dosage: UNK, AS NEEDED (6500 I.U. +/-10% SLOW I.V PUSH PRN EVERY 12-24HOURS)
     Route: 042

REACTIONS (1)
  - Haemorrhage [Not Recovered/Not Resolved]
